FAERS Safety Report 8444270-1 (Version None)
Quarter: 2012Q2

REPORT INFORMATION
  Report Type: 
  Country: None (occurrence: None)
  Receive Date: 20120618
  Receipt Date: 20120611
  Transmission Date: 20120825
  Serious: No
  Sender: FDA-Public Use
  Company Number: US-PFIZER INC-2012140410

PATIENT

DRUGS (1)
  1. ERAXIS [Suspect]
     Indication: FUNGAL INFECTION
     Dosage: UNK

REACTIONS (1)
  - DRUG INEFFECTIVE [None]
